FAERS Safety Report 5917362-6 (Version None)
Quarter: 2008Q4

REPORT INFORMATION
  Report Type: 
  Country: None (occurrence: None)
  Receive Date: 20081014
  Receipt Date: 20081003
  Transmission Date: 20090506
  Serious: Yes (Other)
  Sender: FDA-Public Use
  Company Number: US-WYE-H06252208

PATIENT
  Age: 3 Year
  Sex: Female

DRUGS (1)
  1. BROMPHENIRAMINE MALEATE + PHENYLPROPANOLAMINE HCL [Suspect]
     Indication: DRUG USE FOR UNKNOWN INDICATION
     Dosage: UNKNOWN
     Route: 065

REACTIONS (5)
  - HYPERSENSITIVITY [None]
  - POISONING [None]
  - PRURITUS [None]
  - RASH [None]
  - URTICARIA [None]
